FAERS Safety Report 5529549-5 (Version None)
Quarter: 2007Q4

REPORT INFORMATION
  Report Type: 
  Country: None (occurrence: None)
  Receive Date: 20071129
  Receipt Date: 20071119
  Transmission Date: 20080405
  Serious: Yes (Death, Life-Threatening, Hospitalization)
  Sender: FDA-Public Use
  Company Number: US-ELI_LILLY_AND_COMPANY-US200710006501

PATIENT
  Sex: Female

DRUGS (5)
  1. CYMBALTA [Suspect]
     Indication: MAJOR DEPRESSION
     Dosage: 20 MG, UNK
     Dates: start: 20070426, end: 20071019
  2. CYMBALTA [Suspect]
     Dosage: 100 MG, DAILY (1/D)
  3. AMBIEN [Concomitant]
     Dosage: UNK, AS NEEDED
  4. VALIUM [Concomitant]
  5. ALCOHOL [Concomitant]

REACTIONS (7)
  - COMA [None]
  - COMPLETED SUICIDE [None]
  - HAEMORRHAGE [None]
  - LIVER FUNCTION TEST ABNORMAL [None]
  - OVERDOSE [None]
  - RENAL FAILURE ACUTE [None]
  - SEPSIS [None]
